FAERS Safety Report 6828996-9 (Version None)
Quarter: 2010Q3

REPORT INFORMATION
  Report Type: 
  Country: None (occurrence: None)
  Receive Date: 20100709
  Receipt Date: 20070226
  Transmission Date: 20110219
  Serious: No
  Sender: FDA-Public Use
  Company Number: US-PFIZER INC-2007015808

PATIENT
  Sex: Female
  Weight: 68.95 kg

DRUGS (5)
  1. CHANTIX [Suspect]
     Indication: SMOKING CESSATION THERAPY
     Dates: start: 20070101, end: 20070101
  2. AZITHROMYCIN [Suspect]
     Indication: HYPERSENSITIVITY
     Dates: start: 20070101, end: 20070101
  3. ALBUTEROL [Suspect]
     Indication: HYPERSENSITIVITY
     Route: 055
     Dates: start: 20070101, end: 20070101
  4. AZMACORT [Suspect]
     Indication: HYPERSENSITIVITY
     Route: 055
     Dates: start: 20070101, end: 20070101
  5. MONTELUKAST SODIUM [Concomitant]

REACTIONS (5)
  - DIARRHOEA [None]
  - HYPERSENSITIVITY [None]
  - OESOPHAGITIS [None]
  - THROAT IRRITATION [None]
  - UPPER RESPIRATORY TRACT INFECTION [None]
